FAERS Safety Report 20493759 (Version 2)
Quarter: 2022Q2

REPORT INFORMATION
  Report Type: Spontaneous
  Country: IT (occurrence: IT)
  Receive Date: 20220221
  Receipt Date: 20220413
  Transmission Date: 20220721
  Serious: Yes (Death, Life-Threatening, Other)
  Sender: FDA-Public Use
  Company Number: IT-AMGEN-ITASP2022027963

PATIENT

DRUGS (4)
  1. FILGRASTIM [Suspect]
     Active Substance: FILGRASTIM
     Indication: Prophylaxis
     Dosage: 300 MICROGRAM, QD (ON DAYS 3 - 5 OF EACH WEEK)
     Route: 058
  2. EPIRUBICIN [Concomitant]
     Active Substance: EPIRUBICIN
     Indication: Breast cancer
     Dosage: UNK (50 AND 90 MG/ METER SQUARE WEEKLY AND TRIWEEKLY RESPECTIVALY)
     Route: 042
  3. PACLITAXEL [Concomitant]
     Active Substance: PACLITAXEL
     Indication: Breast cancer
     Dosage: UNK (120 AND 175 MG/ METER SQUARE AS A 1 HOUR INFUSION WEEKLY AND TRI WEEKLY RESPECTIVALY)
     Route: 042
  4. CISPLATIN [Concomitant]
     Active Substance: CISPLATIN
     Indication: Breast cancer
     Dosage: 30 MILLIGRAM/SQ. METER (AS A 30 MIN. INFUSION WEEKLY FOR A MAX. OF 12 CYCLES)
     Route: 042

REACTIONS (20)
  - Death [Fatal]
  - Neutropenia [Unknown]
  - Neurotoxicity [Unknown]
  - Toxicity to various agents [Unknown]
  - Skin toxicity [Unknown]
  - Ejection fraction decreased [Recovered/Resolved]
  - Mucosal inflammation [Unknown]
  - Vomiting [Unknown]
  - Nausea [Unknown]
  - Sepsis [Unknown]
  - Thrombocytopenia [Unknown]
  - Decreased appetite [Unknown]
  - Anaemia [Unknown]
  - Diarrhoea [Unknown]
  - Neuropathy peripheral [Unknown]
  - Breast cancer [Unknown]
  - Febrile neutropenia [Unknown]
  - Gastrointestinal toxicity [Unknown]
  - Peripheral sensory neuropathy [Unknown]
  - Fatigue [Unknown]
